APPROVED DRUG PRODUCT: DOXYCYCLINE HYCLATE
Active Ingredient: DOXYCYCLINE HYCLATE
Strength: EQ 100MG BASE
Dosage Form/Route: TABLET;ORAL
Application: A212487 | Product #001
Applicant: PRAXGEN PHARMACEUTICALS LLC
Approved: Mar 30, 2022 | RLD: No | RS: No | Type: DISCN